FAERS Safety Report 7640931-2 (Version None)
Quarter: 2011Q3

REPORT INFORMATION
  Report Type: 
  Country: None (occurrence: None)
  Receive Date: 20110728
  Receipt Date: 20110718
  Transmission Date: 20111222
  Serious: Yes (Hospitalization)
  Sender: FDA-Public Use
  Company Number: US-JNJFOC-20110708588

PATIENT
  Sex: Male
  Weight: 42.46 kg

DRUGS (3)
  1. REMICADE [Suspect]
     Indication: INFLAMMATORY BOWEL DISEASE
     Route: 042
     Dates: start: 20080411
  2. REMICADE [Suspect]
     Route: 042
     Dates: start: 20071016
  3. PREVACID [Concomitant]

REACTIONS (1)
  - SMALL INTESTINAL OBSTRUCTION [None]
